FAERS Safety Report 17767808 (Version 1)
Quarter: 2020Q2

REPORT INFORMATION
  Report Type: Spontaneous
  Country: FR (occurrence: FR)
  Receive Date: 20200511
  Receipt Date: 20200511
  Transmission Date: 20200714
  Serious: Yes (Hospitalization)
  Sender: FDA-Public Use
  Company Number: FR-ELI_LILLY_AND_COMPANY-FR202005000204

PATIENT
  Age: 26 Year
  Sex: Female

DRUGS (4)
  1. PROZAC [Suspect]
     Active Substance: FLUOXETINE HYDROCHLORIDE
     Indication: PRODUCT USED FOR UNKNOWN INDICATION
     Dosage: 15 DOSAGE FORM, TOTAL
     Route: 048
     Dates: start: 20200320, end: 20200320
  2. IMOVANE [Suspect]
     Active Substance: ZOPICLONE
     Indication: PRODUCT USED FOR UNKNOWN INDICATION
     Dosage: 14 DOSAGE FORM, TOTAL
     Route: 048
     Dates: start: 20200320, end: 20200320
  3. PRAZEPAM [Suspect]
     Active Substance: PRAZEPAM
     Indication: PRODUCT USED FOR UNKNOWN INDICATION
     Dosage: 200 MG, TOTAL
     Route: 048
     Dates: start: 20200320, end: 20200320
  4. NOZINAN [LEVOMEPROMAZINE MALEATE] [Suspect]
     Active Substance: LEVOMEPROMAZINE MALEATE
     Indication: PRODUCT USED FOR UNKNOWN INDICATION
     Dosage: 7 DOSAGE FORM, TOTAL
     Route: 048
     Dates: start: 20200320, end: 20200320

REACTIONS (2)
  - Somnolence [Unknown]
  - Poisoning deliberate [Unknown]

NARRATIVE: CASE EVENT DATE: 20200320
